FAERS Safety Report 7671223-3 (Version None)
Quarter: 2011Q3

REPORT INFORMATION
  Report Type: 
  Country: None (occurrence: None)
  Receive Date: 20110809
  Receipt Date: 20110729
  Transmission Date: 20111222
  Serious: Yes (Other)
  Sender: FDA-Public Use
  Company Number: DK-NOVOPROD-332915

PATIENT

DRUGS (9)
  1. FUROSEMIDE [Suspect]
  2. METFORMIN HCL [Suspect]
     Indication: TYPE 2 DIABETES MELLITUS
  3. DIGOXIN [Suspect]
  4. CORODIL                            /00042901/ [Suspect]
  5. ONGLYZA [Suspect]
     Indication: TYPE 2 DIABETES MELLITUS
     Dosage: 5 MG, QD
     Route: 048
     Dates: start: 20101110, end: 20101204
  6. POTASSIUM CHLORIDE [Suspect]
  7. INSULATARD NPH HUMAN [Suspect]
     Indication: TYPE 2 DIABETES MELLITUS
  8. CRESTOR [Suspect]
     Route: 048
  9. MAGNYL                             /00002701/ [Suspect]

REACTIONS (3)
  - FLUID RETENTION [None]
  - WEIGHT INCREASED [None]
  - HEADACHE [None]
